FAERS Safety Report 6111592-9 (Version None)
Quarter: 2009Q1

REPORT INFORMATION
  Report Type: 
  Country: None (occurrence: None)
  Receive Date: 20090311
  Receipt Date: 20090305
  Transmission Date: 20090719
  Serious: Yes (Other)
  Sender: FDA-Public Use
  Company Number: US-MERCK-0903USA00857

PATIENT
  Age: 55 Year
  Sex: Male

DRUGS (16)
  1. PRINIVIL [Suspect]
     Indication: HYPERTENSION
     Route: 048
     Dates: end: 20080901
  2. METOPROLOL [Concomitant]
     Route: 065
  3. GEMFIBROZIL [Concomitant]
     Route: 065
  4. FERROUS SULFATE [Concomitant]
     Route: 065
  5. TORISEL [Suspect]
     Indication: RENAL CELL CARCINOMA
     Route: 041
     Dates: start: 20080715, end: 20080917
  6. HYDROCHLOROTHIAZIDE [Concomitant]
     Route: 065
  7. PROCHLORPERAZINE [Concomitant]
     Route: 065
  8. ERGOCALCIFEROL [Concomitant]
     Route: 065
  9. FOLIC ACID [Concomitant]
     Route: 065
  10. NIACINAMIDE [Concomitant]
     Route: 065
  11. PANTHENOL [Concomitant]
     Route: 065
  12. VITAMIN A [Concomitant]
     Route: 065
  13. RIBOFLAVIN [Concomitant]
     Route: 065
  14. THIAMINE HYDROCHLORIDE [Concomitant]
     Route: 065
  15. ASCORBIC ACID [Concomitant]
     Route: 065
  16. [THERAPY UNSPECIFIED] [Concomitant]
     Route: 065

REACTIONS (4)
  - ANGIOEDEMA [None]
  - OROPHARYNGEAL PAIN [None]
  - PARAESTHESIA [None]
  - THROAT TIGHTNESS [None]
